FAERS Safety Report 13521392 (Version 3)
Quarter: 2019Q2

REPORT INFORMATION
  Report Type: Spontaneous
  Country: US (occurrence: US)
  Receive Date: 20170508
  Receipt Date: 20190614
  Transmission Date: 20190711
  Serious: No
  Sender: FDA-Public Use
  Company Number: US-PFIZER INC-2017197194

PATIENT
  Age: 62 Year
  Sex: Female

DRUGS (1)
  1. PREMPRO [Suspect]
     Active Substance: ESTROGENS, CONJUGATED\MEDROXYPROGESTERONE ACETATE
     Indication: HORMONE REPLACEMENT THERAPY
     Dosage: 0.5 DF, 1X/DAY[ (ESTROGENS CONJUGATED:0.45 MG/ MEDROXYPROGESTERONE ACETATE 1.5MG ) 0.5 TAB ONCE A DA
     Route: 048

REACTIONS (2)
  - Alopecia [Unknown]
  - Incorrect dose administered [Unknown]
